FAERS Safety Report 18025353 (Version 14)
Quarter: 2021Q2

REPORT INFORMATION
  Report Type: Report from Study
  Country: CA (occurrence: CA)
  Receive Date: 20200715
  Receipt Date: 20210619
  Transmission Date: 20210717
  Serious: Yes (Death, Hospitalization, Other)
  Sender: FDA-Public Use
  Company Number: PHHY2019CA067907

PATIENT
  Age: 79 Year
  Sex: Male

DRUGS (5)
  1. SANDOSTATIN LAR DEPOT [Suspect]
     Active Substance: OCTREOTIDE ACETATE
     Dosage: 30 MG, Q3W
     Route: 030
     Dates: start: 20190219
  2. SANDOSTATIN LAR DEPOT [Suspect]
     Active Substance: OCTREOTIDE ACETATE
     Dosage: 30 MG, Q2W
     Route: 030
     Dates: start: 20210318
  3. SANDOSTATIN LAR DEPOT [Suspect]
     Active Substance: OCTREOTIDE ACETATE
     Dosage: 30 MG, Q2W
     Route: 065
     Dates: start: 20210218
  4. SANDOSTATIN LAR DEPOT [Suspect]
     Active Substance: OCTREOTIDE ACETATE
     Dosage: 30 MG, Q2W
     Route: 030
     Dates: start: 20190219
  5. SANDOSTATIN LAR DEPOT [Suspect]
     Active Substance: OCTREOTIDE ACETATE
     Indication: CARCINOID TUMOUR
     Dosage: 30 MG, QMO (EVERY 4 WEEKS)
     Route: 030
     Dates: start: 20190219

REACTIONS (22)
  - Malignant neoplasm progression [Unknown]
  - Body temperature decreased [Unknown]
  - Skin abrasion [Unknown]
  - Inappropriate schedule of product administration [Unknown]
  - Diarrhoea [Unknown]
  - Asthenia [Unknown]
  - Blood urine present [Unknown]
  - Carcinoid tumour [Unknown]
  - Fall [Unknown]
  - Oedema [Unknown]
  - Blood glucose increased [Recovered/Resolved]
  - Metastases to gastrointestinal tract [Unknown]
  - Renal failure [Unknown]
  - Pulse abnormal [Unknown]
  - Heart rate increased [Unknown]
  - Blood pressure increased [Unknown]
  - Peripheral swelling [Unknown]
  - Blood pressure diastolic decreased [Unknown]
  - Tremor [Unknown]
  - Death [Fatal]
  - Blood pressure systolic increased [Unknown]
  - Metastases to liver [Unknown]

NARRATIVE: CASE EVENT DATE: 20190220
